FAERS Safety Report 6268521-7 (Version None)
Quarter: 2009Q3

REPORT INFORMATION
  Report Type: 
  Country: None (occurrence: None)
  Receive Date: 20090713
  Receipt Date: 20090713
  Transmission Date: 20100115
  Serious: Yes (Life-Threatening)
  Sender: FDA-Public Use
  Company Number: None

PATIENT
  Age: 49 Year
  Sex: Male
  Weight: 86.1834 kg

DRUGS (1)
  1. VENTOLIN HFA [Suspect]
     Indication: ASTHMA
     Dosage: ONE PUFF FOUR HOURS INHAL
     Route: 055
     Dates: start: 20090711, end: 20090711

REACTIONS (4)
  - APHONIA [None]
  - BRONCHITIS [None]
  - DRUG INEFFECTIVE [None]
  - RESPIRATORY TRACT INFLAMMATION [None]
